FAERS Safety Report 11209730 (Version 1)
Quarter: 2015Q2

REPORT INFORMATION
  Report Type: Spontaneous
  Country: US (occurrence: US)
  Receive Date: 20150622
  Receipt Date: 20150622
  Transmission Date: 20150821
  Serious: Yes (Other)
  Sender: FDA-Public Use
  Company Number: US-MPIJNJ-2012-01879

PATIENT
  Age: 73 Year
  Sex: Female
  Weight: 61.22 kg

DRUGS (5)
  1. VELCADE [Suspect]
     Active Substance: BORTEZOMIB
     Dosage: 1.0 MG/M2, 2/WEEK
     Route: 058
  2. BABY ASPIRIN [Concomitant]
     Active Substance: ASPIRIN
     Indication: PRODUCT USED FOR UNKNOWN INDICATION
     Dosage: 81 MG, UNK
  3. VELCADE [Suspect]
     Active Substance: BORTEZOMIB
     Indication: PLASMA CELL MYELOMA
     Dosage: 1.3 MG/M2, 2/WEEK
     Route: 058
     Dates: start: 20120206
  4. BYSTOLIC [Concomitant]
     Active Substance: NEBIVOLOL HYDROCHLORIDE
     Indication: PRODUCT USED FOR UNKNOWN INDICATION
     Dosage: 10 MG, UNK
  5. DIOVAN [Concomitant]
     Active Substance: VALSARTAN
     Indication: PRODUCT USED FOR UNKNOWN INDICATION
     Dosage: 80 MG, UNK

REACTIONS (5)
  - Fatigue [Recovering/Resolving]
  - Dyspepsia [Not Recovered/Not Resolved]
  - Joint swelling [Not Recovered/Not Resolved]
  - Swelling face [Not Recovered/Not Resolved]
  - Back pain [Not Recovered/Not Resolved]

NARRATIVE: CASE EVENT DATE: 20120207
